FAERS Safety Report 5372509-8 (Version None)
Quarter: 2007Q2

REPORT INFORMATION
  Report Type: 
  Country: None (occurrence: None)
  Receive Date: 20070627
  Receipt Date: 20070615
  Transmission Date: 20071010
  Serious: Yes (Other)
  Sender: FDA-Public Use
  Company Number: AT-BOEHRINGER INGELHEIM PHARMACEUTICALS, INC.-2007-DE-03626GD

PATIENT
  Age: 64 Year
  Sex: Male

DRUGS (2)
  1. PRAMIPEXOLE DIHYDROCHLORIDE [Suspect]
     Indication: PARKINSON'S DISEASE
     Route: 048
     Dates: start: 20040820, end: 20050203
  2. LEVODOPA [Suspect]
     Indication: PARKINSON'S DISEASE

REACTIONS (1)
  - HIP ARTHROPLASTY [None]
